FAERS Safety Report 9413780 (Version 2)
Quarter: 2013Q3

REPORT INFORMATION
  Report Type: Spontaneous
  Country: CO (occurrence: None)
  Receive Date: 20130717
  Receipt Date: 20130717
  Transmission Date: 20140515
  Serious: Yes (Hospitalization, Other)
  Sender: FDA-Public Use
  Company Number: ENTC2013-0250

PATIENT
  Age: 81 Year
  Sex: Male
  Weight: 58 kg

DRUGS (4)
  1. STALEVO (LEVODOPA, CARBIDOPA, ENTACAPONE) [Suspect]
     Indication: PARKINSON^S DISEASE
     Dosage: 200 MG (100 MG,2 IN 1 D)
     Route: 048
     Dates: start: 2012
  2. EUTIROX [Concomitant]
  3. BETALOC [Concomitant]
  4. AVODART [Concomitant]

REACTIONS (3)
  - Malnutrition [None]
  - Pneumonia [None]
  - Dysphagia [None]
